FAERS Safety Report 4930920-0 (Version None)
Quarter: 2006Q1

REPORT INFORMATION
  Report Type: 
  Country: None (occurrence: None)
  Receive Date: 20060227
  Receipt Date: 20060217
  Transmission Date: 20060701
  Serious: Yes (Hospitalization, Other)
  Sender: FDA-Public Use
  Company Number: SUSI-2005-00786

PATIENT
  Age: 46 Year
  Sex: Female
  Weight: 47.6 kg

DRUGS (5)
  1. ADDERALL XR 10 [Suspect]
     Indication: SLUGGISHNESS
     Dosage: 30 MG, 1X/DAY: QD, ORAL
     Route: 048
     Dates: start: 20050302, end: 20050728
  2. XANAX [Concomitant]
  3. NEURONTIN [Concomitant]
  4. PREMARIN/SCH/(ESTROGENS CONJUGATED, MEDROGESTERONE) [Concomitant]
  5. NIZORAL [Concomitant]

REACTIONS (16)
  - AMNESIA [None]
  - ANTISOCIAL BEHAVIOUR [None]
  - CONVULSION [None]
  - DYSKINESIA [None]
  - FLASHBACK [None]
  - HALLUCINATION [None]
  - LEGAL PROBLEM [None]
  - MALNUTRITION [None]
  - MUSCLE TWITCHING [None]
  - OFF LABEL USE [None]
  - PHYSICAL ASSAULT [None]
  - PRESCRIBED OVERDOSE [None]
  - PSYCHOTIC DISORDER [None]
  - SOCIAL PROBLEM [None]
  - STRESS [None]
  - WEIGHT DECREASED [None]
